FAERS Safety Report 13385421 (Version 1)
Quarter: 2017Q1

REPORT INFORMATION
  Report Type: Spontaneous
  Country: US (occurrence: US)
  Receive Date: 20170330
  Receipt Date: 20170330
  Transmission Date: 20170429
  Serious: Yes (Other)
  Sender: FDA-Public Use
  Company Number: None

PATIENT
  Age: 53 Year
  Sex: Female
  Weight: 50.4 kg

DRUGS (3)
  1. VITAMINS-MULTI [Concomitant]
  2. LORAZEPAM. [Suspect]
     Active Substance: LORAZEPAM
     Indication: ANXIETY
     Dosage: ?          QUANTITY:36 TABLET(S);?
     Route: 048
     Dates: start: 20170117, end: 20170330
  3. HORMONES [Concomitant]
     Active Substance: UNSPECIFIED INGREDIENT

REACTIONS (4)
  - Insomnia [None]
  - Condition aggravated [None]
  - Headache [None]
  - Panic attack [None]

NARRATIVE: CASE EVENT DATE: 20170117
